FAERS Safety Report 9995409 (Version 1)
Quarter: 2014Q1

REPORT INFORMATION
  Report Type: Spontaneous
  Country: GB (occurrence: None)
  Receive Date: 20140307
  Receipt Date: 20140307
  Transmission Date: 20141002
  Serious: Yes (Congenital Anomaly, Other)
  Sender: FDA-Public Use
  Company Number: AUR-APL-2014-02391

PATIENT
  Sex: 0

DRUGS (2)
  1. ALENDRONIC ACID [Suspect]
     Indication: CROHN^S DISEASE
     Route: 064
  2. ALENDRONIC ACID [Suspect]
     Indication: OFF LABEL USE
     Route: 064

REACTIONS (3)
  - Foetal exposure during pregnancy [None]
  - Foetal cardiac disorder [None]
  - Foetal exposure during pregnancy [None]
